FAERS Safety Report 17065048 (Version 1)
Quarter: 2019Q4

REPORT INFORMATION
  Report Type: Spontaneous
  Country: US (occurrence: US)
  Receive Date: 20191024
  Receipt Date: 20191024
  Transmission Date: 20200122
  Serious: No
  Sender: FDA-Public Use
  Company Number: None

PATIENT

DRUGS (2)
  1. YUMMY LIQUID IRON NOVA FERRUM PEDIATRIC DROPS [Suspect]
     Active Substance: IRON\POLYSACCHARIDES
  2. WOW HIGH POTENCY LIQUID IRON NOVA FERRUM [Suspect]
     Active Substance: CHOLECALCIFEROL\IRON

REACTIONS (1)
  - Product use complaint [None]
